FAERS Safety Report 5242282-2 (Version None)
Quarter: 2007Q1

REPORT INFORMATION
  Report Type: 
  Country: None (occurrence: None)
  Receive Date: 20070216
  Receipt Date: 20070216
  Transmission Date: 20070707
  Serious: Yes (Hospitalization)
  Sender: FDA-Public Use
  Company Number: None

PATIENT
  Sex: Male
  Weight: 88 kg

DRUGS (8)
  1. SPORANOX [Suspect]
     Indication: HISTOPLASMOSIS DISSEMINATED
     Dosage: 200 MG DAILY PO
     Route: 048
     Dates: start: 20070202, end: 20070211
  2. VALSARTAN [Concomitant]
  3. FELODIPINE [Concomitant]
  4. SIMVASTATIN [Concomitant]
  5. ASPIRIN [Concomitant]
  6. MULTI-VITAMIN [Concomitant]
  7. ACETAMINOPHEN [Concomitant]
  8. PREDNISONE [Concomitant]

REACTIONS (4)
  - CONFUSIONAL STATE [None]
  - MYALGIA [None]
  - PYREXIA [None]
  - RASH [None]
